FAERS Safety Report 23132459 (Version 1)
Quarter: 2023Q4

REPORT INFORMATION
  Report Type: Spontaneous
  Country: US (occurrence: US)
  Receive Date: 20231101
  Receipt Date: 20231101
  Transmission Date: 20240110
  Serious: No
  Sender: FDA-Public Use
  Company Number: US-SANOFI-01820910

PATIENT
  Sex: Male

DRUGS (1)
  1. CAMPATH [Suspect]
     Active Substance: ALEMTUZUMAB
     Dosage: UNK
     Route: 042

REACTIONS (3)
  - Lower limb fracture [Unknown]
  - Fall [Unknown]
  - Chills [Unknown]
